FAERS Safety Report 4607541-2 (Version None)
Quarter: 2005Q1

REPORT INFORMATION
  Report Type: 
  Country: None (occurrence: None)
  Receive Date: 20050309
  Receipt Date: 20050224
  Transmission Date: 20050727
  Serious: Yes (Other)
  Sender: FDA-Public Use
  Company Number: K200500278

PATIENT
  Sex: 0

DRUGS (1)
  1. SEPTRA [Suspect]
     Indication: OPPORTUNISTIC INFECTION
     Dosage: 2.88G BID, INTRAVENOUS
     Route: 042

REACTIONS (1)
  - CARDIAC FAILURE [None]
